FAERS Safety Report 7888309-0 (Version None)
Quarter: 2011Q4

REPORT INFORMATION
  Report Type: 
  Country: None (occurrence: None)
  Receive Date: 20111103
  Receipt Date: 20111022
  Transmission Date: 20120403
  Serious: Yes (Hospitalization, Other)
  Sender: FDA-Public Use
  Company Number: US-BAYER-2011-019283

PATIENT
  Age: 38 Year
  Sex: Female
  Weight: 90 kg

DRUGS (14)
  1. SIMVASTATIN [Concomitant]
     Indication: BLOOD CHOLESTEROL ABNORMAL
     Dosage: 20 MG, QD
     Dates: start: 20080418
  2. DIPHENOXYLATE HCL + ATROPINE SULFATE [Concomitant]
     Dosage: UNK
     Route: 048
     Dates: start: 20080322
  3. PREDNISONE [Concomitant]
     Dosage: 20 MG, UNK
     Route: 048
     Dates: start: 20080215
  4. YAZ [Suspect]
     Indication: MENSTRUATION IRREGULAR
  5. PROMETHAZINE [Concomitant]
     Indication: VOMITING
  6. PROMETHAZINE - CODEINE [CODEINE PHOSPHATE,PROMETHAZINE HYDROCHLORI [Concomitant]
     Indication: COUGH
     Dosage: UNK
     Dates: start: 20080225
  7. AZITHROMYCIN [Concomitant]
     Dosage: 25 MG, UNK
     Dates: start: 20080225
  8. METRONIDAZOLE [Concomitant]
     Indication: INFECTION
  9. PROMETHAZINE [Concomitant]
     Indication: NAUSEA
     Dosage: UNK UNK, PRN
     Dates: start: 20080322
  10. METRONIDAZOLE [Concomitant]
     Indication: VAGINITIS BACTERIAL
     Dosage: UNK UNK, HS
     Route: 067
     Dates: start: 20080513
  11. YAZ [Suspect]
     Indication: CONTRACEPTION
     Dosage: UNK
     Dates: start: 20071201, end: 20080901
  12. SULFAMETHOXAZOLE AND TRIMETHOPRIM [Concomitant]
     Dosage: UNK UNK, BID
     Dates: start: 20080322
  13. PHENTERMINE [Concomitant]
     Indication: WEIGHT CONTROL
     Dosage: 37.5 MG, OM
     Dates: start: 20070601, end: 20080401
  14. HISTINEX HC [Concomitant]
     Indication: COUGH
     Dosage: UNK
     Route: 048
     Dates: start: 20080201

REACTIONS (3)
  - PAIN [None]
  - CHOLECYSTITIS [None]
  - ABDOMINAL PAIN [None]
